FAERS Safety Report 6088875-4 (Version None)
Quarter: 2009Q1

REPORT INFORMATION
  Report Type: 
  Country: None (occurrence: None)
  Receive Date: 20090219
  Receipt Date: 20090209
  Transmission Date: 20090719
  Serious: Yes (Life-Threatening, Hospitalization, Disabling, Other)
  Sender: FDA-Public Use
  Company Number: 107#03#2009-00441

PATIENT
  Sex: Female

DRUGS (4)
  1. DOXYCYCLINE [Suspect]
     Indication: NASOPHARYNGITIS
     Dosage: 1 DOSAGE FORM ORAL
     Route: 048
     Dates: start: 20081017, end: 20081025
  2. GARDASIL (INJECTION) (PAPILLOMAVIRUS (HUMAN TYPE 6, 11, 16, 18)) [Suspect]
     Indication: IMMUNISATION
     Dosage: 120 ?G INTRAMUSCULAR
     Route: 030
     Dates: start: 20081023, end: 20081023
  3. BELARA (TABLETS) (ETHINYLESTRADIOL, CHLORMADINONE) [Concomitant]
  4. INVEGA (TABLETS) (PALIPERIDONE) [Concomitant]

REACTIONS (8)
  - GENERAL PHYSICAL HEALTH DETERIORATION [None]
  - HAEMOLYTIC URAEMIC SYNDROME [None]
  - HEADACHE [None]
  - MICROANGIOPATHY [None]
  - NAUSEA [None]
  - PERITONEAL DIALYSIS [None]
  - RENAL FAILURE [None]
  - VOMITING [None]
